FAERS Safety Report 5967570-3 (Version None)
Quarter: 2008Q4

REPORT INFORMATION
  Report Type: 
  Country: None (occurrence: None)
  Receive Date: 20081125
  Receipt Date: 20081113
  Transmission Date: 20090506
  Serious: Yes (Hospitalization)
  Sender: FDA-Public Use
  Company Number: KR-PFIZER INC-2008098881

PATIENT
  Sex: Male
  Weight: 64 kg

DRUGS (11)
  1. VFEND [Suspect]
     Indication: ASPERGILLOSIS
     Route: 042
     Dates: start: 20080919, end: 20080924
  2. URSODIOL [Concomitant]
     Indication: LIVER DISORDER
     Dosage: DAILY DOSE:300MG-FREQ:PER DAY: TID
     Route: 048
     Dates: start: 20080811, end: 20080924
  3. TAMSULOSIN HCL [Concomitant]
     Indication: HYPERPLASIA
     Route: 048
     Dates: start: 20080812, end: 20080924
  4. POTASSIUM CHLORIDE [Concomitant]
     Indication: MINERAL SUPPLEMENTATION
     Dosage: DAILY DOSE:3600MG-FREQ:PER DAY:  TID
     Route: 048
     Dates: start: 20080802, end: 20080923
  5. RABEPRAZOLE SODIUM [Concomitant]
     Indication: GASTRODUODENAL ULCER
     Route: 048
     Dates: start: 20080903, end: 20080924
  6. ITRACONAZOLE [Concomitant]
     Indication: ANTIFUNGAL TREATMENT
     Dosage: DAILY DOSE:200MG-FREQ:PER DAY: BID
     Route: 048
     Dates: start: 20080908, end: 20080921
  7. ZOLPIDEM [Concomitant]
     Indication: HYPNOTHERAPY
     Route: 048
     Dates: start: 20080912, end: 20080919
  8. ACETAMINOPHEN [Concomitant]
     Indication: PYREXIA
     Route: 042
     Dates: start: 20080909, end: 20080926
  9. ACETAMINOPHEN [Concomitant]
     Indication: PAIN
  10. METOCLOPRAMIDE [Concomitant]
     Indication: VOMITING
     Dosage: DAILY DOSE:20MG-FREQ:PER DAY: BID
     Route: 042
     Dates: start: 20080723, end: 20080924
  11. METOCLOPRAMIDE [Concomitant]
     Indication: GASTROINTESTINAL DISORDER

REACTIONS (1)
  - BRONCHOPULMONARY ASPERGILLOSIS [None]
